FAERS Safety Report 9194196 (Version 1)
Quarter: 2013Q1

REPORT INFORMATION
  Report Type: Spontaneous
  Country: IT (occurrence: IT)
  Receive Date: 20130327
  Receipt Date: 20130327
  Transmission Date: 20140127
  Serious: Yes (Hospitalization)
  Sender: FDA-Public Use
  Company Number: IT-BAYER-2013-038847

PATIENT
  Age: 83 Year
  Sex: Female

DRUGS (7)
  1. CARDIOASPIRIN [Suspect]
     Indication: MYOCARDIAL ISCHAEMIA
     Dosage: 100 MG, QD
     Route: 048
     Dates: start: 20120101
  2. SERTRALINE [Concomitant]
     Route: 048
  3. LASIX [Concomitant]
     Dosage: UNK
     Route: 048
  4. LORTAAN [Concomitant]
     Dosage: UNK
     Route: 048
  5. SINEMET [Concomitant]
     Dosage: UNK
     Route: 048
  6. MADOPAR [Concomitant]
     Dosage: UNK
     Route: 048
  7. CARDICOR [Concomitant]
     Dosage: UNK
     Route: 048

REACTIONS (2)
  - Loss of consciousness [Unknown]
  - Melaena [Unknown]
